FAERS Safety Report 17727253 (Version 1)
Quarter: 2020Q2

REPORT INFORMATION
  Report Type: Report from Study
  Country: CA (occurrence: CA)
  Receive Date: 20200430
  Receipt Date: 20200430
  Transmission Date: 20200714
  Serious: Yes (Hospitalization, Other)
  Sender: FDA-Public Use
  Company Number: CA-BAYER-2020-067290

PATIENT
  Age: 38 Year
  Sex: Female

DRUGS (5)
  1. BETASERON [Suspect]
     Active Substance: INTERFERON BETA-1B
     Indication: MULTIPLE SCLEROSIS
     Dosage: UNK
     Route: 058
     Dates: start: 20140902
  2. IBUPROFEN. [Concomitant]
     Active Substance: IBUPROFEN
     Dosage: UNK, PRN
  3. TYLENOL [Concomitant]
     Active Substance: ACETAMINOPHEN
  4. TOVIAZ [Concomitant]
     Active Substance: FESOTERODINE FUMARATE
     Dosage: 8 MG, QD
  5. ESTROGEN [Concomitant]
     Active Substance: ESTROGENS
     Dosage: 625 MICROGRAM PER GRAM, QD

REACTIONS (6)
  - Clostridium difficile infection [Recovered/Resolved]
  - General physical health deterioration [None]
  - Clostridium difficile infection [Recovered/Resolved]
  - Clostridium difficile infection [Recovered/Resolved]
  - Volvulus [None]
  - Malaise [None]

NARRATIVE: CASE EVENT DATE: 201604
